FAERS Safety Report 12601662 (Version 1)
Quarter: 2016Q3

REPORT INFORMATION
  Report Type: Spontaneous
  Country: US (occurrence: US)
  Receive Date: 20160728
  Receipt Date: 20160728
  Transmission Date: 20161109
  Serious: Yes (Life-Threatening, Other)
  Sender: FDA-Public Use
  Company Number: US-ALVOGEN-2016-ALVOGEN-026797

PATIENT
  Age: 36 Year
  Sex: Male

DRUGS (5)
  1. WELLBUTRIN [Concomitant]
     Active Substance: BUPROPION HYDROCHLORIDE
     Indication: PRODUCT USED FOR UNKNOWN INDICATION
  2. VALIUM [Concomitant]
     Active Substance: DIAZEPAM
     Indication: PRODUCT USED FOR UNKNOWN INDICATION
  3. LOSARTAN/HYDROCHLOROTHIAZIDE [Concomitant]
     Indication: PRODUCT USED FOR UNKNOWN INDICATION
  4. OXYCODONE/APAP [Suspect]
     Active Substance: ACETAMINOPHEN\OXYCODONE HYDROCHLORIDE
     Indication: PRODUCT USED FOR UNKNOWN INDICATION
  5. ESOMEPRAZOLE [Concomitant]
     Active Substance: ESOMEPRAZOLE
     Indication: PRODUCT USED FOR UNKNOWN INDICATION

REACTIONS (17)
  - Encephalopathy [Recovered/Resolved]
  - Hepatitis E antibody positive [None]
  - Aspartate aminotransferase increased [None]
  - Blood bilirubin increased [None]
  - Alanine aminotransferase increased [None]
  - Drug-induced liver injury [Recovered/Resolved]
  - Hepatic necrosis [None]
  - Liver transplant [None]
  - Cholestasis [None]
  - International normalised ratio increased [None]
  - Hepatitis E [None]
  - Overdose [Recovered/Resolved]
  - Blood pressure increased [None]
  - Hyperreflexia [None]
  - Platelet count decreased [None]
  - Haemoglobin decreased [None]
  - Blood creatinine increased [None]
